FAERS Safety Report 4680250-X (Version None)
Quarter: 2005Q2

REPORT INFORMATION
  Report Type: 
  Country: None (occurrence: None)
  Receive Date: 20050601
  Receipt Date: 20050523
  Transmission Date: 20051028
  Serious: Yes (Hospitalization)
  Sender: FDA-Public Use
  Company Number: 2005AP000452

PATIENT
  Age: 75 Year
  Sex: Male

DRUGS (1)
  1. RANITIDINE HYDROCHLORIDE [Suspect]
     Indication: ABDOMINAL PAIN UPPER
     Dosage: 150 MG;BID;PO
     Route: 048

REACTIONS (6)
  - CHOLESTASIS [None]
  - EXCORIATION [None]
  - HEPATIC NECROSIS [None]
  - HEPATIC STEATOSIS [None]
  - HEPATOMEGALY [None]
  - HYPERSENSITIVITY [None]
